FAERS Safety Report 4684786-7 (Version None)
Quarter: 2005Q2

REPORT INFORMATION
  Report Type: 
  Country: None (occurrence: None)
  Receive Date: 20050606
  Receipt Date: 20050429
  Transmission Date: 20051028
  Serious: Yes (Hospitalization)
  Sender: FDA-Public Use
  Company Number: USA050496933

PATIENT
  Sex: Male

DRUGS (3)
  1. ALIMTA [Suspect]
     Indication: NON-SMALL CELL LUNG CANCER
  2. VITAMIN B-12 [Concomitant]
  3. FOLIC ACID [Concomitant]

REACTIONS (1)
  - BONE MARROW DEPRESSION [None]
